FAERS Safety Report 13898395 (Version 1)
Quarter: 2017Q3

REPORT INFORMATION
  Report Type: Spontaneous
  Country: US (occurrence: US)
  Receive Date: 20170823
  Receipt Date: 20170823
  Transmission Date: 20171127
  Serious: No
  Sender: FDA-Public Use
  Company Number: US-ASTRAZENECA-2017SE85780

PATIENT
  Age: 73 Year
  Sex: Female
  Weight: 88.9 kg

DRUGS (6)
  1. NEXIUM 24HR [Suspect]
     Active Substance: ESOMEPRAZOLE MAGNESIUM
     Indication: GASTROOESOPHAGEAL REFLUX DISEASE
     Dosage: 20 MILLIGRAMS ONE OR SOMETIMES TWO A DAY
     Route: 048
     Dates: start: 201609
  2. NEXIUM [Suspect]
     Active Substance: ESOMEPRAZOLE MAGNESIUM
     Indication: GASTROOESOPHAGEAL REFLUX DISEASE
     Route: 048
     Dates: start: 2015, end: 201601
  3. XANAX [Concomitant]
     Active Substance: ALPRAZOLAM
     Route: 048
     Dates: start: 2004
  4. VALIUM [Concomitant]
     Active Substance: DIAZEPAM
     Route: 048
     Dates: start: 2004
  5. NEXIUM [Suspect]
     Active Substance: ESOMEPRAZOLE MAGNESIUM
     Indication: GASTROOESOPHAGEAL REFLUX DISEASE
     Dosage: GENERIC
     Route: 048
     Dates: start: 201601, end: 201609
  6. LOPRESSOR METOPROLOL TARTRATE [Concomitant]
     Indication: HEART RATE ABNORMAL
     Route: 048
     Dates: start: 2004

REACTIONS (6)
  - Ulcer [Unknown]
  - Erythema [Recovered/Resolved]
  - Arthritis [Unknown]
  - Intentional product misuse [Unknown]
  - Anxiety [Unknown]
  - Throat irritation [Unknown]
